FAERS Safety Report 8228988-1 (Version None)
Quarter: 2012Q1

REPORT INFORMATION
  Report Type: 
  Country: None (occurrence: None)
  Receive Date: 20120322
  Receipt Date: 20120312
  Transmission Date: 20120608
  Serious: Yes (Other)
  Sender: FDA-Public Use
  Company Number: GB-ROCHE-1051156

PATIENT
  Sex: Female

DRUGS (12)
  1. OMEPRAZOLE [Concomitant]
  2. LUCENTIS [Suspect]
     Indication: PRODUCT USED FOR UNKNOWN INDICATION
     Route: 050
     Dates: start: 20031101
  3. LETROZOLE [Concomitant]
  4. ATENOLOL [Concomitant]
  5. CARBAZOCHROME [Concomitant]
  6. NIFEDIPINE [Concomitant]
  7. FERROUS FUMARATE [Concomitant]
  8. CLOPIDOGREL [Concomitant]
  9. LUCENTIS [Suspect]
     Dates: start: 20111221
  10. ISOSORBIDE DINITRATE [Concomitant]
  11. ALENDRONIC ACID [Concomitant]
  12. SIMVASTATIN [Concomitant]

REACTIONS (2)
  - MALAISE [None]
  - LOWER RESPIRATORY TRACT INFECTION [None]
